FAERS Safety Report 8837895 (Version 1)
Quarter: 2012Q4

REPORT INFORMATION
  Report Type: 
  Country: US (occurrence: US)
  Receive Date: 20121012
  Receipt Date: 20121012
  Transmission Date: 20130627
  Serious: Yes (Other)
  Sender: FDA-Public Use
  Company Number: US-JNJFOC-20121004808

PATIENT
  Sex: Female

DRUGS (1)
  1. RISPERDAL [Suspect]
     Indication: SCHIZOAFFECTIVE DISORDER
     Dosage: at bed time
     Route: 065
     Dates: start: 1995, end: 2005

REACTIONS (1)
  - Prolactinoma [Recovered/Resolved]
